FAERS Safety Report 15492067 (Version 1)
Quarter: 2018Q4

REPORT INFORMATION
  Report Type: Spontaneous
  Country: US (occurrence: US)
  Receive Date: 20181011
  Receipt Date: 20181011
  Transmission Date: 20190205
  Serious: Yes (Hospitalization)
  Sender: FDA-Public Use
  Company Number: None

PATIENT
  Age: 56 Year
  Sex: Female

DRUGS (22)
  1. BUPROPION. [Concomitant]
     Active Substance: BUPROPION
  2. PRAVASTATIN. [Concomitant]
     Active Substance: PRAVASTATIN
  3. LISINOPRIL. [Concomitant]
     Active Substance: LISINOPRIL
  4. CITALOPRAM [Concomitant]
     Active Substance: CITALOPRAM HYDROBROMIDE
  5. MORPHINE SUL [Concomitant]
     Active Substance: MORPHINE SULFATE
  6. FLUTICASONE. [Concomitant]
     Active Substance: FLUTICASONE
  7. CIPROFLOXACIN. [Concomitant]
     Active Substance: CIPROFLOXACIN
  8. LEVOTHYROXIN [Concomitant]
     Active Substance: LEVOTHYROXINE
  9. INDAPAMIDE. [Concomitant]
     Active Substance: INDAPAMIDE
  10. MAGNESIUM-OX [Concomitant]
  11. TIZANIDINE. [Concomitant]
     Active Substance: TIZANIDINE
  12. ALENDRONATE [Concomitant]
     Active Substance: ALENDRONATE SODIUM
  13. MORPHINE SULFATE. [Concomitant]
     Active Substance: MORPHINE SULFATE
  14. MERCAPTOPUR [Concomitant]
  15. ALENDRONATE [Concomitant]
     Active Substance: ALENDRONATE SODIUM
  16. ALPRAZOLAM. [Concomitant]
     Active Substance: ALPRAZOLAM
  17. POTASSIUM CITRATE. [Concomitant]
     Active Substance: POTASSIUM CITRATE
  18. LOVASTATIN. [Concomitant]
     Active Substance: LOVASTATIN
  19. PEG-3350/KCL SOL [Concomitant]
  20. HUMIRA [Suspect]
     Active Substance: ADALIMUMAB
     Indication: CROHN^S DISEASE
     Dosage: ?          OTHER FREQUENCY:QOW;?
     Route: 058
     Dates: start: 20180306
  21. AMITRIPTYLIN [Concomitant]
     Active Substance: AMITRIPTYLINE
  22. PRAVASTATIN. [Concomitant]
     Active Substance: PRAVASTATIN

REACTIONS (2)
  - Hypotension [None]
  - Dehydration [None]

NARRATIVE: CASE EVENT DATE: 20180917
